FAERS Safety Report 9155140 (Version 2)
Quarter: 2013Q3

REPORT INFORMATION
  Report Type: Report from Study
  Country: US (occurrence: US)
  Receive Date: 20130311
  Receipt Date: 20130717
  Transmission Date: 20140515
  Serious: Yes (Other)
  Sender: FDA-Public Use
  Company Number: US-ROCHE-1183305

PATIENT
  Age: 45 Year
  Sex: Female
  Weight: 104.42 kg

DRUGS (23)
  1. ACTEMRA [Suspect]
     Indication: RHEUMATOID ARTHRITIS
     Dosage: 400 MG/20 ML
     Route: 042
     Dates: start: 20121213
  2. ACTEMRA [Suspect]
     Route: 042
     Dates: start: 20130116
  3. ACTEMRA [Suspect]
     Route: 042
     Dates: start: 20121216
  4. ACTEMRA [Suspect]
     Route: 042
     Dates: start: 20121121
  5. ACTEMRA [Suspect]
     Route: 042
     Dates: start: 20130213
  6. ACTEMRA [Suspect]
     Route: 042
     Dates: start: 20121112
  7. ACTEMRA [Suspect]
     Route: 042
     Dates: start: 20121005
  8. MEDROL DOSEPAK [Concomitant]
     Route: 065
     Dates: start: 20121223, end: 20121229
  9. INSULIN [Concomitant]
     Dosage: 27 GEVERY 5/8^1 ML
     Route: 065
     Dates: start: 20101203
  10. LEUCOVORIN CALCIUM [Concomitant]
     Dosage: 1-2 TABLET
     Route: 065
     Dates: start: 20120115
  11. CYMBALTA [Concomitant]
     Route: 065
     Dates: start: 20120909
  12. GABAPENTIN [Concomitant]
     Route: 048
     Dates: start: 20121015
  13. KLONOPIN TABLETS [Concomitant]
     Route: 048
     Dates: start: 20130122
  14. CIMETIDINE [Concomitant]
     Dosage: 1 TAB
     Route: 065
     Dates: start: 20130204
  15. METHOTREXATE SODIUM [Concomitant]
     Dosage: 0.9
     Route: 065
     Dates: start: 20130206
  16. NUMOISYN LOZENGES (UNK INGREDIENTS) [Concomitant]
     Dosage: 1-4 LOZENGES DAILY
     Route: 065
     Dates: start: 20101014
  17. PROVIGIL (UNITED STATES) [Concomitant]
     Dosage: 1 TABLET
     Route: 065
     Dates: start: 20121108
  18. METHOTREXATE [Concomitant]
     Route: 065
     Dates: start: 20130221
  19. PREDNISONE [Concomitant]
     Dosage: 1-2 TABLETS
     Route: 065
     Dates: start: 20130221
  20. MOBIC [Concomitant]
     Dosage: 1 TABLET
     Route: 048
     Dates: start: 20130228
  21. TYLENOL [Concomitant]
     Route: 065
  22. TAGAMET [Concomitant]
  23. PROVIGIL [Concomitant]
     Route: 048

REACTIONS (13)
  - Memory impairment [Not Recovered/Not Resolved]
  - Liver function test abnormal [Unknown]
  - Erythema of eyelid [Recovered/Resolved]
  - Eyelid pain [Recovered/Resolved]
  - Headache [Recovered/Resolved]
  - Rash [Recovered/Resolved]
  - Eye swelling [Recovered/Resolved]
  - Fibromyalgia [Unknown]
  - Fatigue [Not Recovered/Not Resolved]
  - Nasopharyngitis [Recovered/Resolved]
  - Gastroenteritis viral [Recovered/Resolved]
  - Joint stiffness [Not Recovered/Not Resolved]
  - Malaise [Not Recovered/Not Resolved]
